FAERS Safety Report 7044156-3 (Version None)
Quarter: 2010Q4

REPORT INFORMATION
  Report Type: 
  Country: None (occurrence: None)
  Receive Date: 20101013
  Receipt Date: 20101006
  Transmission Date: 20110411
  Serious: No
  Sender: FDA-Public Use
  Company Number: US-PFIZER INC-2010108553

PATIENT
  Sex: Female
  Weight: 79.819 kg

DRUGS (2)
  1. ZOLOFT [Suspect]
     Indication: ANXIETY
     Dosage: 75 MG, 1X/DAY
     Route: 048
     Dates: start: 20000101, end: 20000101
  2. ZOLOFT [Suspect]
     Indication: PANIC ATTACK
     Dosage: 50 MG, 2X/DAY
     Route: 048
     Dates: start: 20000101

REACTIONS (2)
  - ANXIETY [None]
  - DRUG INEFFECTIVE [None]
